FAERS Safety Report 9301026 (Version 4)
Quarter: 2013Q3

REPORT INFORMATION
  Report Type: Spontaneous
  Country: IE (occurrence: IE)
  Receive Date: 20130521
  Receipt Date: 20130820
  Transmission Date: 20140515
  Serious: Yes (Death, Other)
  Sender: FDA-Public Use
  Company Number: IE-ROCHE-1226639

PATIENT
  Age: 42 Year
  Sex: Male

DRUGS (1)
  1. LARIAM [Suspect]
     Indication: PROPHYLAXIS
     Route: 065

REACTIONS (2)
  - Completed suicide [Fatal]
  - Depression [Unknown]
